FAERS Safety Report 18934935 (Version 1)
Quarter: 2021Q1

REPORT INFORMATION
  Report Type: Spontaneous
  Country: US (occurrence: US)
  Receive Date: 20210224
  Receipt Date: 20210224
  Transmission Date: 20210420
  Serious: Yes (Life-Threatening, Hospitalization)
  Sender: FDA-Public Use
  Company Number: US-MYLANLABS-2021M1011390

PATIENT
  Age: 45 Year
  Sex: Male

DRUGS (1)
  1. PREDNISONE. [Suspect]
     Active Substance: PREDNISONE
     Indication: GLOMERULONEPHRITIS MEMBRANOUS
     Route: 048

REACTIONS (3)
  - Hyperglycaemia [Recovered/Resolved]
  - Nephrotic syndrome [Recovered/Resolved]
  - Strongyloidiasis [Recovered/Resolved]
